FAERS Safety Report 13152816 (Version 1)
Quarter: 2017Q1

REPORT INFORMATION
  Report Type: Spontaneous
  Country: DE (occurrence: DE)
  Receive Date: 20170126
  Receipt Date: 20170126
  Transmission Date: 20170428
  Serious: Yes (Hospitalization)
  Sender: FDA-Public Use
  Company Number: DE-TEVA-733502ACC

PATIENT
  Age: 74 Year
  Sex: Male

DRUGS (18)
  1. RAMIPRIL. [Concomitant]
     Active Substance: RAMIPRIL
     Dosage: ONCE DAILY
     Route: 048
  2. COTRIM FORTE [Concomitant]
     Active Substance: SULFAMETHOXAZOLE\TRIMETHOPRIM
     Dosage: 2 UNK, UNKNOWN FREQ.
     Route: 048
  3. BENDAMUSTINE HYDROCHLORIDE. [Suspect]
     Active Substance: BENDAMUSTINE HYDROCHLORIDE
     Indication: DIFFUSE LARGE B-CELL LYMPHOMA
     Dosage: CYCLIC
     Route: 042
     Dates: start: 20161220
  4. COTRIM FORTE [Concomitant]
     Active Substance: SULFAMETHOXAZOLE\TRIMETHOPRIM
     Indication: INFECTION PROPHYLAXIS
     Route: 048
  5. INEGY [Concomitant]
     Active Substance: EZETIMIBE\SIMVASTATIN
     Indication: CORONARY ARTERY DISEASE
     Route: 048
  6. INEGY [Concomitant]
     Active Substance: EZETIMIBE\SIMVASTATIN
     Route: 048
  7. RAMIPRIL. [Concomitant]
     Active Substance: RAMIPRIL
     Route: 048
  8. RAMIPRIL. [Concomitant]
     Active Substance: RAMIPRIL
     Dosage: 2
     Route: 048
  9. COTRIM FORTE [Concomitant]
     Active Substance: SULFAMETHOXAZOLE\TRIMETHOPRIM
     Route: 048
  10. COTRIM FORTE [Concomitant]
     Active Substance: SULFAMETHOXAZOLE\TRIMETHOPRIM
     Dosage: UNK, ONCE WEEKLY
     Route: 048
  11. FALITHROM [Concomitant]
     Active Substance: PHENPROCOUMON
     Indication: PRODUCT USED FOR UNKNOWN INDICATION
     Route: 048
  12. RITUXIMAB [Suspect]
     Active Substance: RITUXIMAB
     Indication: DIFFUSE LARGE B-CELL LYMPHOMA
     Dosage: CYCLIC
     Route: 042
     Dates: start: 20161220
  13. INEGY [Concomitant]
     Active Substance: EZETIMIBE\SIMVASTATIN
     Route: 048
  14. RAMIPRIL. [Concomitant]
     Active Substance: RAMIPRIL
     Route: 048
  15. RAMIPRIL. [Concomitant]
     Active Substance: RAMIPRIL
     Indication: HYPERTENSION
     Dosage: 10 MILLIGRAM DAILY;
     Route: 048
  16. INEGY [Concomitant]
     Active Substance: EZETIMIBE\SIMVASTATIN
     Dosage: 1
     Route: 048
  17. INEGY [Concomitant]
     Active Substance: EZETIMIBE\SIMVASTATIN
     Dosage: ONCE DAILY
     Route: 048
  18. COTRIM FORTE [Concomitant]
     Active Substance: SULFAMETHOXAZOLE\TRIMETHOPRIM
     Dosage: UNK, UNKNOWN FREQ.
     Route: 048

REACTIONS (5)
  - Asthenia [Recovered/Resolved]
  - Dehydration [Recovered/Resolved]
  - Off label use [Unknown]
  - Pyrexia [Recovered/Resolved]
  - Hot flush [Recovered/Resolved]

NARRATIVE: CASE EVENT DATE: 20161220
